FAERS Safety Report 5017220-8 (Version None)
Quarter: 2006Q2

REPORT INFORMATION
  Report Type: 
  Country: None (occurrence: None)
  Receive Date: 20060602
  Receipt Date: 20060523
  Transmission Date: 20061013
  Serious: Yes (Hospitalization)
  Sender: FDA-Public Use
  Company Number: IE-ABBOTT-06P-229-0333903-00

PATIENT
  Sex: Female

DRUGS (11)
  1. CYCLOSPORINE [Suspect]
     Indication: IMMUNOSUPPRESSION
     Dosage: MICRO-EMULSION
  2. AZATHIOPRINE [Suspect]
     Indication: IMMUNOSUPPRESSION
  3. PREDNISOLONE [Suspect]
     Indication: IMMUNOSUPPRESSION
     Dosage: TAPERED DOSING
  4. PREDNISOLONE [Suspect]
  5. THYMOGLOBULIN [Concomitant]
     Indication: IMMUNOSUPPRESSANT DRUG THERAPY
     Dosage: OVER FOUR HOURS
     Route: 042
  6. THYMOGLOBULIN [Concomitant]
     Route: 042
  7. GANCICLOVIR [Concomitant]
     Indication: ANTIVIRAL PROPHYLAXIS
     Route: 042
  8. ACYCLOVIR [Concomitant]
     Indication: ANTIVIRAL PROPHYLAXIS
     Route: 048
  9. FLUCONAZOLE [Concomitant]
     Indication: ANTIFUNGAL PROPHYLAXIS
  10. BACTRIM [Concomitant]
     Indication: ANTIBIOTIC PROPHYLAXIS
     Dosage: 240 MG/ 5ML
  11. BACTRIM [Concomitant]

REACTIONS (6)
  - BASAL CELL CARCINOMA [None]
  - CANDIDIASIS [None]
  - DERMAL CYST [None]
  - HERPES SIMPLEX [None]
  - HYPERKERATOSIS [None]
  - SKIN PAPILLOMA [None]
